FAERS Safety Report 16741238 (Version 1)
Quarter: 2019Q3

REPORT INFORMATION
  Report Type: Spontaneous
  Country: DE (occurrence: DE)
  Receive Date: 20190826
  Receipt Date: 20190826
  Transmission Date: 20191005
  Serious: Yes (Hospitalization, Congenital Anomaly)
  Sender: FDA-Public Use
  Company Number: DE-PERRIGO-19DE009989

PATIENT
  Sex: Male

DRUGS (5)
  1. MESALAZINE [Concomitant]
     Active Substance: MESALAMINE
     Indication: FOETAL EXPOSURE DURING PREGNANCY
     Dosage: UNK (1ST-3RD TRIMESTER)
     Route: 064
  2. AZATHIOPRINE. [Concomitant]
     Active Substance: AZATHIOPRINE
     Indication: FOETAL EXPOSURE DURING PREGNANCY
     Dosage: UNK (1ST TRIMESTER)
     Route: 064
  3. MOMETASONE [Concomitant]
     Active Substance: MOMETASONE
     Indication: FOETAL EXPOSURE DURING PREGNANCY
     Dosage: UNK (1ST TRIMESTER)
     Route: 064
  4. OMEPRAZOLE. [Concomitant]
     Active Substance: OMEPRAZOLE
     Indication: FOETAL EXPOSURE DURING PREGNANCY
     Dosage: UNK (1ST-3RD TRIMESTER)
     Route: 064
  5. ACETAMINOPHEN. [Suspect]
     Active Substance: ACETAMINOPHEN
     Indication: FOETAL EXPOSURE DURING PREGNANCY
     Dosage: 1000 MG, QD
     Route: 064

REACTIONS (2)
  - Congenital cystic kidney disease [Unknown]
  - Foetal exposure during pregnancy [Recovered/Resolved]
